FAERS Safety Report 26205149 (Version 1)
Quarter: 2025Q4

REPORT INFORMATION
  Report Type: Spontaneous
  Country: EU (occurrence: EU)
  Receive Date: 20251228
  Receipt Date: 20251228
  Transmission Date: 20260118
  Serious: Yes (Other)
  Sender: AUROBINDO
  Company Number: EU-TEVA-VS-3381019

PATIENT
  Age: 46 Year
  Sex: Male

DRUGS (6)
  1. QUETIAPINE [Suspect]
     Active Substance: QUETIAPINE
     Indication: Hallucination
     Dosage: 400 MILLIGRAM, ONCE A DAY
     Route: 065
  2. QUETIAPINE [Suspect]
     Active Substance: QUETIAPINE
     Indication: Paranoia
  3. AMISULPRIDE [Suspect]
     Active Substance: AMISULPRIDE
     Indication: Paranoia
     Dosage: 800 MILLIGRAM, ONCE A DAY
     Route: 065
  4. AMISULPRIDE [Suspect]
     Active Substance: AMISULPRIDE
     Indication: Hallucination
  5. RISPERIDONE [Suspect]
     Active Substance: RISPERIDONE
     Indication: Hallucination
     Dosage: 50 MILLIGRAM (DEPOT 50 MG EVERY TWO WEEKS FOR 16 YEARS)
  6. RISPERIDONE [Suspect]
     Active Substance: RISPERIDONE
     Indication: Paranoia

REACTIONS (1)
  - Obesity [Recovering/Resolving]
